FAERS Safety Report 11849662 (Version 1)
Quarter: 2015Q4

REPORT INFORMATION
  Report Type: Spontaneous
  Country: US (occurrence: None)
  Receive Date: 20151217
  Receipt Date: 20151217
  Transmission Date: 20160305
  Serious: Yes (Disabling)
  Sender: FDA-Public Use
  Company Number: None

PATIENT
  Age: 93 Year
  Sex: Female
  Weight: 64.86 kg

DRUGS (9)
  1. TRAMADOL HYDROCHLORIDE. [Suspect]
     Active Substance: TRAMADOL HYDROCHLORIDE
     Indication: BACK PAIN
     Dates: start: 20151115, end: 20151118
  2. GLIPIZIDE. [Concomitant]
     Active Substance: GLIPIZIDE
  3. TYLENOL [Concomitant]
     Active Substance: ACETAMINOPHEN
  4. LOSARTAN. [Concomitant]
     Active Substance: LOSARTAN
  5. METFORMIN [Concomitant]
     Active Substance: METFORMIN HYDROCHLORIDE
  6. METOPROLOL [Concomitant]
     Active Substance: METOPROLOL
  7. OS CAL (CALCIUM + D3) [Concomitant]
  8. ASPIRIN (BAYER) (NON AZ PRODUCT) [Concomitant]
     Active Substance: ASPIRIN
  9. CENTRIUM SILVER (WOMEN 50+) [Concomitant]

REACTIONS (4)
  - Asthenia [None]
  - Disorientation [None]
  - Decreased appetite [None]
  - Tremor [None]

NARRATIVE: CASE EVENT DATE: 20151115
